FAERS Safety Report 16822378 (Version 1)
Quarter: 2019Q4

REPORT INFORMATION
  Report Type: Spontaneous
  Country: US (occurrence: US)
  Receive Date: 20190918
  Receipt Date: 20190918
  Transmission Date: 20200122
  Serious: No
  Sender: FDA-Public Use
  Company Number: None

PATIENT
  Sex: Female

DRUGS (1)
  1. PREDNISOLONE 1% [Suspect]
     Active Substance: PREDNISOLONE

REACTIONS (3)
  - Iridocyclitis [None]
  - Drug hypersensitivity [None]
  - Condition aggravated [None]
